FAERS Safety Report 7230974-5 (Version None)
Quarter: 2011Q1

REPORT INFORMATION
  Report Type: 
  Country: None (occurrence: None)
  Receive Date: 20110118
  Receipt Date: 20110112
  Transmission Date: 20110831
  Serious: Yes (Other)
  Sender: FDA-Public Use
  Company Number: GB-ROCHE-749504

PATIENT
  Sex: Female

DRUGS (6)
  1. ACUPAN [Concomitant]
     Indication: FIBROMYALGIA
     Route: 048
  2. AMITRIPTYLINE [Concomitant]
     Indication: FIBROMYALGIA
     Route: 048
     Dates: start: 20100712
  3. CO-CODAMOL [Concomitant]
     Route: 048
  4. TRAMADOL [Concomitant]
     Route: 048
  5. DIAZEPAM [Concomitant]
     Route: 048
  6. TOCILIZUMAB [Suspect]
     Dosage: RECEIVED ONE DOSE
     Route: 042
     Dates: start: 20101209, end: 20101209

REACTIONS (2)
  - RASH GENERALISED [None]
  - MALAISE [None]
